FAERS Safety Report 16913857 (Version 1)
Quarter: 2019Q4

REPORT INFORMATION
  Report Type: Report from Study
  Country: US (occurrence: US)
  Receive Date: 20191014
  Receipt Date: 20191014
  Transmission Date: 20200122
  Serious: Yes (Other)
  Sender: FDA-Public Use
  Company Number: US-GILEAD-2019-0432564

PATIENT
  Age: 71 Year
  Sex: Male

DRUGS (3)
  1. AMBRISENTAN [Suspect]
     Active Substance: AMBRISENTAN
     Indication: PRODUCT USED FOR UNKNOWN INDICATION
     Dosage: 10 MG, QD
     Route: 048
     Dates: start: 20180928
  2. AMBRISENTAN [Suspect]
     Active Substance: AMBRISENTAN
     Dosage: 5 MG, QD
     Route: 065
  3. AMLODIPINE [Concomitant]
     Active Substance: AMLODIPINE BESYLATE

REACTIONS (9)
  - Skin burning sensation [Unknown]
  - Tremor [Unknown]
  - Seizure like phenomena [Unknown]
  - Dizziness [Unknown]
  - Vertigo [Unknown]
  - Product use issue [Unknown]
  - Loss of consciousness [Unknown]
  - Confusional state [Unknown]
  - Feeling abnormal [Unknown]
